FAERS Safety Report 18479662 (Version 2)
Quarter: 2020Q4

REPORT INFORMATION
  Report Type: Spontaneous
  Country: TR (occurrence: TR)
  Receive Date: 20201109
  Receipt Date: 20201208
  Transmission Date: 20210114
  Serious: Yes (Death, Hospitalization, Other)
  Sender: FDA-Public Use
  Company Number: TR-AMGEN-TURSP2020177800

PATIENT
  Age: 5 Year
  Sex: Male

DRUGS (1)
  1. BLINCYTO [Suspect]
     Active Substance: BLINATUMOMAB
     Indication: B PRECURSOR TYPE ACUTE LEUKAEMIA
     Dosage: UNK
     Route: 065
     Dates: start: 201901

REACTIONS (7)
  - Death [Fatal]
  - Neutropenia [Not Recovered/Not Resolved]
  - Acute lymphocytic leukaemia recurrent [Unknown]
  - Seizure [Unknown]
  - Central nervous system leukaemia [Unknown]
  - Systemic mycosis [Not Recovered/Not Resolved]
  - Treatment failure [Unknown]
